FAERS Safety Report 10242483 (Version 1)
Quarter: 2014Q2

REPORT INFORMATION
  Report Type: Spontaneous
  Country: TW (occurrence: TW)
  Receive Date: 20140617
  Receipt Date: 20140617
  Transmission Date: 20141212
  Serious: Yes (Death)
  Sender: FDA-Public Use
  Company Number: TW-009507513-1406TWN007137

PATIENT
  Age: 75 Year
  Sex: Female

DRUGS (1)
  1. FOSAMAX PLUS TABLETS [Suspect]
     Indication: OSTEOPOROSIS
     Dosage: 70 MG/2800 UI
     Route: 048
     Dates: start: 20131120, end: 20131229

REACTIONS (1)
  - Death [Fatal]
